FAERS Safety Report 5556843-4 (Version None)
Quarter: 2007Q4

REPORT INFORMATION
  Report Type: 
  Country: None (occurrence: None)
  Receive Date: 20071210
  Receipt Date: 20071210
  Transmission Date: 20080405
  Serious: Yes (Hospitalization)
  Sender: FDA-Public Use
  Company Number: None

PATIENT
  Sex: Male
  Weight: 81.3 kg

DRUGS (1)
  1. CYTARABINE [Suspect]
     Dosage: 36000 MG
     Dates: end: 20050403

REACTIONS (3)
  - ABDOMINAL PAIN [None]
  - FEBRILE NEUTROPENIA [None]
  - ORTHOSTATIC HYPOTENSION [None]
